FAERS Safety Report 14805775 (Version 2)
Quarter: 2018Q2

REPORT INFORMATION
  Report Type: Report from Study
  Country: None (occurrence: US)
  Receive Date: 20180425
  Receipt Date: 20180517
  Transmission Date: 20180711
  Serious: Yes (Death, Hospitalization, Other)
  Sender: FDA-Public Use
  Company Number: US-ABBVIE-18P-163-2332221-00

PATIENT
  Age: 78 Year
  Sex: Male
  Weight: 68.1 kg

DRUGS (1)
  1. VENCLEXTA [Suspect]
     Active Substance: VENETOCLAX
     Indication: MYELODYSPLASTIC SYNDROME
     Dosage: AS DIRECTED
     Route: 048
     Dates: start: 20171229

REACTIONS (4)
  - Pyrexia [Not Recovered/Not Resolved]
  - Death [Fatal]
  - Pneumonia [Not Recovered/Not Resolved]
  - Dyspnoea [Not Recovered/Not Resolved]

NARRATIVE: CASE EVENT DATE: 201803
